FAERS Safety Report 9797046 (Version 1)
Quarter: 2014Q1

REPORT INFORMATION
  Report Type: Spontaneous
  Country: US (occurrence: US)
  Receive Date: 20140105
  Receipt Date: 20140105
  Transmission Date: 20141002
  Serious: Yes (Hospitalization)
  Sender: FDA-Public Use
  Company Number: US-MYLANLABS-2013S1028934

PATIENT
  Age: 13 Year
  Sex: Male

DRUGS (7)
  1. QUETIAPINE [Suspect]
     Indication: DRUG ABUSE
     Dosage: TWO CRUSHED TABLETS OF QUETIAPINE 500MG ON 4 SEPARATE OCCASIONS
     Route: 045
  2. QUETIAPINE [Suspect]
     Indication: AFFECTIVE DISORDER
     Dosage: TWO CRUSHED TABLETS OF QUETIAPINE 500MG ON 4 SEPARATE OCCASIONS
     Route: 045
  3. QUETIAPINE [Suspect]
     Indication: DRUG ABUSE
     Dosage: 500MG DAILY
     Route: 048
  4. QUETIAPINE [Suspect]
     Indication: AFFECTIVE DISORDER
     Dosage: 500MG DAILY
     Route: 048
  5. QUETIAPINE [Suspect]
     Indication: DRUG ABUSE
     Dosage: 100MG DAILY
     Route: 065
  6. QUETIAPINE [Suspect]
     Indication: AFFECTIVE DISORDER
     Dosage: 100MG DAILY
     Route: 065
  7. VALPROIC ACID [Concomitant]
     Indication: AFFECTIVE DISORDER
     Dosage: 500MG AT BEDTIME
     Route: 048

REACTIONS (6)
  - Drug abuse [Recovering/Resolving]
  - Intentional drug misuse [Recovering/Resolving]
  - Dyskinesia [Recovering/Resolving]
  - Myoclonus [Recovering/Resolving]
  - Akathisia [Recovering/Resolving]
  - Toxicity to various agents [Recovering/Resolving]
